FAERS Safety Report 8578724-4 (Version None)
Quarter: 2012Q3

REPORT INFORMATION
  Report Type: 
  Country: None (occurrence: None)
  Receive Date: 20120808
  Receipt Date: 20120806
  Transmission Date: 20120928
  Serious: No
  Sender: FDA-Public Use
  Company Number: US-PFIZER INC-2012191855

PATIENT
  Age: 64 Year
  Sex: Female
  Weight: 120 kg

DRUGS (3)
  1. LYRICA [Suspect]
     Indication: FIBROMYALGIA
     Dosage: 75 MG, 2X/DAY
     Dates: start: 20120701
  2. GLYCERIN [Concomitant]
     Indication: CONSTIPATION
     Dosage: UNK
  3. SODIUM PHOSPHATES [Concomitant]
     Indication: CONSTIPATION
     Dosage: UNK

REACTIONS (1)
  - CONSTIPATION [None]
